FAERS Safety Report 8804102 (Version 2)
Quarter: 2013Q1

REPORT INFORMATION
  Report Type: Spontaneous
  Country: DE (occurrence: DE)
  Receive Date: 20120923
  Receipt Date: 20130125
  Transmission Date: 20140127
  Serious: Yes (Hospitalization)
  Sender: FDA-Public Use
  Company Number: DE-BIOGENIDEC-2012BI039360

PATIENT
  Age: 41 Year
  Sex: Female

DRUGS (8)
  1. TYSABRI [Suspect]
     Indication: MULTIPLE SCLEROSIS
     Route: 042
     Dates: start: 20070716, end: 20120806
  2. FAMPYRA [Concomitant]
     Indication: MULTIPLE SCLEROSIS
     Dates: start: 20111219, end: 2012
  3. AMANTADINE [Concomitant]
     Indication: FATIGUE
     Dates: start: 20050926
  4. BACLOFEN [Concomitant]
     Indication: MUSCLE SPASTICITY
     Dates: start: 20120514
  5. DESMOPRESSIN [Concomitant]
     Indication: BLADDER DISORDER
     Dates: start: 20111219
  6. SPASMEX [Concomitant]
     Indication: MUSCLE SPASTICITY
     Dates: start: 20040823
  7. IBUPROFEN [Concomitant]
     Indication: PAIN
     Dates: start: 20090511
  8. TRIMINEURIN [Concomitant]
     Indication: PRODUCT USED FOR UNKNOWN INDICATION

REACTIONS (3)
  - Grand mal convulsion [Recovered/Resolved]
  - Cognitive disorder [Not Recovered/Not Resolved]
  - Headache [Recovered/Resolved]
